FAERS Safety Report 9059169 (Version 1)
Quarter: 2013Q1

REPORT INFORMATION
  Report Type: Spontaneous
  Country: US (occurrence: US)
  Receive Date: 20130211
  Receipt Date: 20130211
  Transmission Date: 20140127
  Serious: No
  Sender: FDA-Public Use
  Company Number: US-BRISTOL-MYERS SQUIBB COMPANY-17115312

PATIENT
  Age: 64 Year
  Sex: Male

DRUGS (3)
  1. METFORMIN HCL [Suspect]
     Dosage: 1DF=10 UNITS
     Dates: start: 2010
  2. AMARYL [Suspect]
     Dosage: 1DF=100 IU/ML.FORMULATION=INJ SOL
     Route: 058
     Dates: start: 201007, end: 2010
  3. LANTUS [Suspect]
     Indication: TYPE 2 DIABETES MELLITUS
     Dosage: 1DF= 10 UNITS.DOSE ICNREASED-28 UNITS
     Dates: start: 201207

REACTIONS (1)
  - Blood glucose abnormal [Not Recovered/Not Resolved]
